FAERS Safety Report 14162301 (Version 3)
Quarter: 2017Q4

REPORT INFORMATION
  Report Type: Spontaneous
  Country: US (occurrence: US)
  Receive Date: 20171106
  Receipt Date: 20171114
  Transmission Date: 20180321
  Serious: Yes (Other)
  Sender: FDA-Public Use
  Company Number: US-PFIZER INC-2017476236

PATIENT
  Sex: Female

DRUGS (4)
  1. NEURONTIN [Suspect]
     Active Substance: GABAPENTIN
     Dosage: 1500 MG, DAILY
  2. SYNTHROID [Concomitant]
     Active Substance: LEVOTHYROXINE SODIUM
     Dosage: UNK
  3. SUBOXONE [Concomitant]
     Active Substance: BUPRENORPHINE HYDROCHLORIDE\NALOXONE HYDROCHLORIDE
     Dosage: UNK
  4. NEURONTIN [Suspect]
     Active Substance: GABAPENTIN
     Indication: COMPLEX REGIONAL PAIN SYNDROME
     Dosage: 3600 MG, DAILY
     Dates: start: 201009

REACTIONS (11)
  - Lower limb fracture [Unknown]
  - Sedation [Recovering/Resolving]
  - Coordination abnormal [Unknown]
  - Ankle fracture [Unknown]
  - Dysgeusia [Unknown]
  - Drug level increased [Unknown]
  - Product use in unapproved indication [Unknown]
  - Gait inability [Unknown]
  - Road traffic accident [Unknown]
  - Rib fracture [Unknown]
  - Somnolence [Recovering/Resolving]

NARRATIVE: CASE EVENT DATE: 201009
